FAERS Safety Report 15956509 (Version 2)
Quarter: 2020Q3

REPORT INFORMATION
  Report Type: Spontaneous
  Country: PT (occurrence: PT)
  Receive Date: 20190213
  Receipt Date: 20200801
  Transmission Date: 20201102
  Serious: Yes (Other)
  Sender: FDA-Public Use
  Company Number: PT-ACCORD-107310

PATIENT
  Age: 54 Year
  Sex: Male

DRUGS (1)
  1. METHOTREXATE. [Suspect]
     Active Substance: METHOTREXATE
     Indication: SYNOVITIS

REACTIONS (2)
  - Disseminated tuberculosis [Unknown]
  - Off label use [Unknown]
